FAERS Safety Report 16882151 (Version 1)
Quarter: 2019Q4

REPORT INFORMATION
  Report Type: Spontaneous
  Country: US (occurrence: US)
  Receive Date: 20191003
  Receipt Date: 20191003
  Transmission Date: 20200122
  Serious: Yes (Hospitalization, Other)
  Sender: FDA-Public Use
  Company Number: US-BAYER-2019-175174

PATIENT
  Age: 60 Year
  Sex: Male
  Weight: 83.9 kg

DRUGS (12)
  1. ATENOLOL. [Concomitant]
     Active Substance: ATENOLOL
  2. INDOCIN [Concomitant]
     Active Substance: INDOMETHACIN
     Dosage: UNK
     Dates: end: 2006
  3. SULFASALAZINE. [Concomitant]
     Active Substance: SULFASALAZINE
  4. ROSUVASTATIN. [Concomitant]
     Active Substance: ROSUVASTATIN
  5. METHOTREXATE SODIUM. [Concomitant]
     Active Substance: METHOTREXATE SODIUM
  6. LOSARTAN. [Concomitant]
     Active Substance: LOSARTAN
  7. ACETYLSALICYLIC ACID [Concomitant]
     Active Substance: ASPIRIN
  8. VIAGRA [Concomitant]
     Active Substance: SILDENAFIL CITRATE
  9. ENBREL [Concomitant]
     Active Substance: ETANERCEPT
     Indication: ARTHRITIS
  10. CLOPIDOGREL [Concomitant]
     Active Substance: CLOPIDOGREL BISULFATE
  11. CYCLOBENZAPRINE. [Concomitant]
     Active Substance: CYCLOBENZAPRINE
  12. NAPROXEN SODIUM ({= 220 MG) [Suspect]
     Active Substance: NAPROXEN SODIUM
     Dosage: UNK
     Dates: end: 2006

REACTIONS (17)
  - Neck pain [None]
  - Throat irritation [None]
  - Cough [None]
  - Abdominal discomfort [None]
  - Blood pressure decreased [None]
  - Post-traumatic stress disorder [None]
  - Diarrhoea [None]
  - Post-traumatic headache [None]
  - Panic attack [None]
  - Malaise [None]
  - Accident [None]
  - Musculoskeletal stiffness [None]
  - Renal failure [None]
  - Barrett^s oesophagus [None]
  - Cervical vertebral fracture [None]
  - Body height decreased [None]
  - Depression [None]
